FAERS Safety Report 4490409-2 (Version None)
Quarter: 2004Q4

REPORT INFORMATION
  Report Type: 
  Country: None (occurrence: None)
  Receive Date: 20041102
  Receipt Date: 20041025
  Transmission Date: 20050328
  Serious: Yes (Life-Threatening, Hospitalization, Disabling)
  Sender: FDA-Public Use
  Company Number: 200420733GDDC

PATIENT
  Age: 50 Year
  Sex: Female
  Weight: 51 kg

DRUGS (4)
  1. ARAVA [Suspect]
     Indication: RHEUMATOID ARTHRITIS
     Route: 048
     Dates: start: 20040914, end: 20041019
  2. METHOTREXATE [Concomitant]
     Dosage: DOSE: UNK
  3. CHLOROQUINE [Concomitant]
     Indication: RHEUMATOID ARTHRITIS
     Route: 048
     Dates: start: 19860101
  4. BIOFENAC ^UCB^ [Concomitant]
     Route: 048
     Dates: start: 19860101

REACTIONS (3)
  - APHASIA [None]
  - BLOOD PRESSURE INCREASED [None]
  - ISCHAEMIC STROKE [None]
